FAERS Safety Report 6588953-7 (Version None)
Quarter: 2010Q1

REPORT INFORMATION
  Report Type: 
  Country: None (occurrence: None)
  Receive Date: 20100218
  Receipt Date: 20100208
  Transmission Date: 20100710
  Serious: Yes (Other)
  Sender: FDA-Public Use
  Company Number: JP-PFIZER INC-2010013982

PATIENT
  Age: 60 Year
  Sex: Male

DRUGS (2)
  1. CHAMPIX [Suspect]
     Indication: SMOKING CESSATION THERAPY
     Dosage: 0.5 MG, 1X/DAY
     Dates: start: 20100115
  2. MOHRUS [Concomitant]
     Indication: PAIN
     Dosage: UNK
     Route: 062
     Dates: start: 20100115

REACTIONS (1)
  - GASTRIC ULCER HAEMORRHAGE [None]
